FAERS Safety Report 7571089-6 (Version None)
Quarter: 2011Q2

REPORT INFORMATION
  Report Type: 
  Country: None (occurrence: None)
  Receive Date: 20110624
  Receipt Date: 20110621
  Transmission Date: 20111010
  Serious: Yes (Hospitalization)
  Sender: FDA-Public Use
  Company Number: FR-PFIZER INC-2011130839

PATIENT
  Age: 61 Year
  Sex: Female
  Weight: 62 kg

DRUGS (9)
  1. BROMOCRIPTINE [Concomitant]
     Dosage: UNK
     Dates: start: 19860101
  2. FOSAMAX [Concomitant]
     Indication: OSTEOPOROSIS
     Dosage: UNK
     Dates: start: 20081007
  3. PEGVISOMANT [Suspect]
     Dosage: 20 MG, 1X/DAY
  4. SEROTONIN ANTAGONISTS [Concomitant]
     Dosage: UNK
     Dates: start: 19880101
  5. PEGVISOMANT [Suspect]
     Indication: ACROMEGALY
     Dosage: 30 MG, 1X/DAY
     Dates: start: 20030701
  6. GLUCOPHAGE [Concomitant]
     Indication: TYPE 2 DIABETES MELLITUS
     Dosage: UNK
     Route: 048
     Dates: start: 20091204
  7. FENOFIBRATE [Concomitant]
     Indication: LIPIDS ABNORMAL
     Dosage: UNK
     Dates: start: 20081007
  8. METFORMIN HCL [Concomitant]
     Indication: TYPE 2 DIABETES MELLITUS
     Dosage: UNK
     Route: 048
     Dates: start: 20081007
  9. UN-ALFA [Concomitant]
     Indication: HYPOCALCAEMIA
     Dosage: UNK
     Dates: start: 20091204

REACTIONS (1)
  - SPINAL COMPRESSION FRACTURE [None]
